FAERS Safety Report 20719408 (Version 1)
Quarter: 2022Q2

REPORT INFORMATION
  Report Type: Report from Study
  Country: JP (occurrence: JP)
  Receive Date: 20220418
  Receipt Date: 20220418
  Transmission Date: 20220720
  Serious: Yes (Other)
  Sender: FDA-Public Use
  Company Number: JP-MYLANLABS-2022M1027361

PATIENT
  Age: 47 Year

DRUGS (3)
  1. CYCLOSPORINE [Suspect]
     Active Substance: CYCLOSPORINE
     Indication: Behcet^s syndrome
     Dosage: INITIAL DOSAGE NOT STATED. LATER, RECEIVED LOW DOSE
     Route: 065
  2. CYCLOSPORINE [Suspect]
     Active Substance: CYCLOSPORINE
     Indication: Uveitis
  3. INFLIXIMAB [Concomitant]
     Active Substance: INFLIXIMAB
     Indication: Behcet^s syndrome
     Dosage: 5 MILLIGRAM/KILOGRAM, AT WEEKS 0, 2, 6 AND EVERY 8 WEEKS THEREAFTER
     Route: 042

REACTIONS (1)
  - Drug ineffective [Unknown]
